FAERS Safety Report 8843271 (Version 1)
Quarter: 2012Q4

REPORT INFORMATION
  Report Type: 
  Country: DE (occurrence: DE)
  Receive Date: 20121016
  Receipt Date: 20121016
  Transmission Date: 20130627
  Serious: Yes (Other)
  Sender: FDA-Public Use
  Company Number: PHHY2012DE090414

PATIENT

DRUGS (1)
  1. FTY 720 [Suspect]

REACTIONS (1)
  - Cardiac arrest [Unknown]
